FAERS Safety Report 9748584 (Version 2)
Quarter: 2013Q4

REPORT INFORMATION
  Report Type: Report from Study
  Country: DK (occurrence: DK)
  Receive Date: 20131212
  Receipt Date: 20131212
  Transmission Date: 20140711
  Serious: Yes (Death, Hospitalization)
  Sender: FDA-Public Use
  Company Number: DK-SANOFI-AVENTIS-CAMP-1003137

PATIENT
  Age: 59 Year
  Sex: Male
  Weight: 81 kg

DRUGS (12)
  1. ALEMTUZUMAB [Suspect]
     Indication: T-CELL LYMPHOMA
     Dosage: 30 MG, 1X QD
     Route: 058
     Dates: start: 20130718, end: 20130718
  2. CYCLOPHOSPHAMIDE [Suspect]
     Indication: T-CELL LYMPHOMA
     Dosage: 144 MG, QD
     Route: 042
     Dates: start: 20130816, end: 20130816
  3. DOXORUBICIN [Suspect]
     Indication: T-CELL LYMPHOMA
     Dosage: 96 MG, 1X,QD
     Route: 042
     Dates: start: 20130816, end: 20130816
  4. VINCRISTINE [Suspect]
     Indication: T-CELL LYMPHOMA
     Dosage: 2 MG, 1X QD
     Route: 042
     Dates: start: 20130816, end: 20130816
  5. PREDNISONE [Suspect]
     Indication: T-CELL LYMPHOMA
     Dosage: 100 MG, 5 DAYS, UNK
     Route: 048
     Dates: start: 20130816, end: 20130912
  6. PEGFILGRASTIM [Suspect]
     Indication: T-CELL LYMPHOMA
     Dosage: 6 MG, 1X QD
     Route: 058
     Dates: start: 20130820, end: 20130820
  7. GARAMYCIN [Concomitant]
     Indication: INFECTION
     Route: 042
     Dates: start: 20130830, end: 20130902
  8. TAZOBACTAM [Concomitant]
     Indication: INFECTION
     Route: 042
     Dates: start: 20130830, end: 20130902
  9. FUROSEMIDE [Concomitant]
     Indication: OEDEMA
     Route: 048
     Dates: start: 20130704, end: 20130909
  10. ACICLOVIR [Concomitant]
     Indication: EPSTEIN-BARR VIRUS INFECTION
     Dosage: ROUTE: IV NOS AND ORAL
     Dates: start: 20130613, end: 20130910
  11. ACICLOVIR [Concomitant]
     Indication: EPSTEIN-BARR VIRUS INFECTION
     Dosage: ROUTE: IV NOS AND ORAL
     Dates: start: 20130909
  12. SULFAMETHOXAZOLE [Concomitant]
     Indication: PROPHYLAXIS
     Route: 048
     Dates: start: 20130611, end: 20130913

REACTIONS (1)
  - Pyrexia [Fatal]
